FAERS Safety Report 12410776 (Version 1)
Quarter: 2016Q2

REPORT INFORMATION
  Report Type: Spontaneous
  Country: US (occurrence: None)
  Receive Date: 20160526
  Receipt Date: 20160526
  Transmission Date: 20160815
  Serious: No
  Sender: FDA-Public Use
  Company Number: None

PATIENT
  Sex: Male

DRUGS (8)
  1. FENOFIBRATE. [Suspect]
     Active Substance: FENOFIBRATE
  2. ISOSORBIDE. [Suspect]
     Active Substance: ISOSORBIDE
  3. METOPROLOL. [Suspect]
     Active Substance: METOPROLOL
  4. METFORMIN [Suspect]
     Active Substance: METFORMIN HYDROCHLORIDE
  5. NITROSTAT [Suspect]
     Active Substance: NITROGLYCERIN
  6. LEVOTHYROXINE. [Suspect]
     Active Substance: LEVOTHYROXINE
  7. LISINOPRIL. [Suspect]
     Active Substance: LISINOPRIL
  8. GLIMEPIRIDE. [Suspect]
     Active Substance: GLIMEPIRIDE

REACTIONS (1)
  - Hospitalisation [None]
